FAERS Safety Report 4528967-1 (Version None)
Quarter: 2004Q4

REPORT INFORMATION
  Report Type: 
  Country: None (occurrence: None)
  Receive Date: 20041215
  Receipt Date: 20041215
  Transmission Date: 20050328
  Serious: No
  Sender: FDA-Public Use
  Company Number: None

PATIENT
  Age: 51 Year
  Sex: Female

DRUGS (4)
  1. ANAPROX [Suspect]
     Indication: BACK PAIN
     Dosage: 550MG PO BID
     Route: 048
     Dates: start: 20040809
  2. ANAPROX [Suspect]
     Indication: OSTEOARTHRITIS
     Dosage: 550MG PO BID
     Route: 048
     Dates: start: 20040809
  3. MOBIC [Suspect]
     Dosage: 7.5 MG BID
  4. BEXTRA [Suspect]

REACTIONS (4)
  - DRUG EFFECT DECREASED [None]
  - NAUSEA [None]
  - PHARMACEUTICAL PRODUCT COMPLAINT [None]
  - STOMACH DISCOMFORT [None]
